FAERS Safety Report 6613642-X (Version None)
Quarter: 2010Q1

REPORT INFORMATION
  Report Type: 
  Country: None (occurrence: None)
  Receive Date: 20100304
  Receipt Date: 20100301
  Transmission Date: 20100710
  Serious: Yes (Death)
  Sender: FDA-Public Use
  Company Number: IT-ROCHE-685944

PATIENT
  Sex: Male

DRUGS (2)
  1. ROCEPHIN [Suspect]
     Indication: BRONCHITIS
     Route: 030
  2. ROCEPHIN [Suspect]
     Dosage: FREQUENCY REPORTED AS UNK
     Route: 030
     Dates: start: 20100217, end: 20100217

REACTIONS (1)
  - ANAPHYLACTIC SHOCK [None]
